FAERS Safety Report 24090668 (Version 1)
Quarter: 2024Q3

REPORT INFORMATION
  Report Type: Spontaneous
  Country: US (occurrence: None)
  Receive Date: 20240712
  Receipt Date: 20240712
  Transmission Date: 20241017
  Serious: Yes (Death)
  Sender: Public
  Company Number: None

PATIENT
  Age: 67 Year
  Sex: Male

DRUGS (2)
  1. SIROLIMUS [Suspect]
     Active Substance: SIROLIMUS
     Indication: Renal transplant
     Dosage: 1 MG DAILY ORAL
     Route: 048
     Dates: start: 20221107
  2. DEVICE [Suspect]
     Active Substance: DEVICE
     Dates: start: 20221107

REACTIONS (1)
  - Death [None]

NARRATIVE: CASE EVENT DATE: 20240707
